FAERS Safety Report 16277371 (Version 1)
Quarter: 2019Q2

REPORT INFORMATION
  Report Type: Spontaneous
  Country: US (occurrence: US)
  Receive Date: 20190506
  Receipt Date: 20190506
  Transmission Date: 20190711
  Serious: No
  Sender: FDA-Public Use
  Company Number: US-ELI_LILLY_AND_COMPANY-US201904005003

PATIENT
  Sex: Female

DRUGS (2)
  1. HUMULIN N [Suspect]
     Active Substance: INSULIN HUMAN
     Indication: PRODUCT USED FOR UNKNOWN INDICATION
     Dosage: 41 U, EACH NIGHT TIME
     Route: 065
  2. HUMULIN N [Suspect]
     Active Substance: INSULIN HUMAN
     Dosage: 41 U, EACH NIGHT TIME
     Route: 065

REACTIONS (3)
  - Blood glucose decreased [Recovered/Resolved]
  - Gastrooesophageal reflux disease [Unknown]
  - Blood glucose increased [Recovered/Resolved]
